FAERS Safety Report 15089789 (Version 4)
Quarter: 2018Q3

REPORT INFORMATION
  Report Type: Spontaneous
  Country: DE (occurrence: DE)
  Receive Date: 20180629
  Receipt Date: 20180801
  Transmission Date: 20181010
  Serious: Yes (Life-Threatening, Hospitalization)
  Sender: FDA-Public Use
  Company Number: PHHY2018DE032097

PATIENT
  Age: 74 Year
  Sex: Female
  Weight: 64 kg

DRUGS (9)
  1. OXALIPLATIN. [Suspect]
     Active Substance: OXALIPLATIN
     Indication: COLORECTAL CANCER METASTATIC
     Dosage: 85 MG/M2, QW
     Route: 042
     Dates: start: 20170629
  2. OXALIPLATIN. [Suspect]
     Active Substance: OXALIPLATIN
     Dosage: 85 MG/M2, QW
     Route: 042
     Dates: start: 20170824
  3. FLUOROURACIL. [Suspect]
     Active Substance: FLUOROURACIL
     Dosage: 2800 MG/M2, Q2W
     Route: 042
     Dates: start: 20170824
  4. FOLINIC ACID [Suspect]
     Active Substance: LEUCOVORIN
     Indication: COLORECTAL CANCER METASTATIC
     Dosage: 400 MG/M2, Q2W
     Route: 042
     Dates: start: 20170629
  5. FOLINIC ACID [Suspect]
     Active Substance: LEUCOVORIN
     Dosage: 400 MG/M2, Q2W
     Route: 042
     Dates: start: 20170824
  6. FOLINIC ACID [Suspect]
     Active Substance: LEUCOVORIN
     Route: 042
     Dates: start: 20170629, end: 20170824
  7. FLUOROURACIL. [Suspect]
     Active Substance: FLUOROURACIL
     Indication: COLORECTAL CANCER METASTATIC
     Dosage: 2800 MG/M2, Q2W
     Route: 042
     Dates: start: 20170629
  8. ERBITUX [Suspect]
     Active Substance: CETUXIMAB
     Indication: COLORECTAL CANCER METASTATIC
     Dosage: 400 MG/M2, QW
     Route: 042
     Dates: start: 20170713
  9. ERBITUX [Suspect]
     Active Substance: CETUXIMAB
     Dosage: 400 MG/M2, QW
     Route: 042
     Dates: start: 20170824

REACTIONS (1)
  - Anastomotic leak [Recovered/Resolved]

NARRATIVE: CASE EVENT DATE: 20170919
